FAERS Safety Report 8621297-8 (Version None)
Quarter: 2012Q3

REPORT INFORMATION
  Report Type: 
  Country: None (occurrence: None)
  Receive Date: 20120824
  Receipt Date: 20120810
  Transmission Date: 20120928
  Serious: Yes (Other)
  Sender: FDA-Public Use
  Company Number: JP-VERTEX PHARMACEUTICAL INC.-AE-2012-007679

PATIENT
  Age: 69 Year
  Sex: Female

DRUGS (12)
  1. PEGINTERFERON ALFA-2B [Suspect]
     Indication: HEPATITIS C
     Dosage: 80 UNK, UNK
     Route: 058
     Dates: start: 20120207, end: 20120221
  2. RIBAVIRIN [Suspect]
     Dosage: 400 UNK, QD
     Route: 048
     Dates: start: 20120629, end: 20120726
  3. RIBAVIRIN [Suspect]
     Dosage: 400 MG, UNK
     Route: 048
     Dates: start: 20120221, end: 20120305
  4. URSO                               /00465701/ [Concomitant]
     Route: 048
     Dates: end: 20120420
  5. VX-950 [Suspect]
     Dosage: 1500 MG, QD
     Route: 048
     Dates: start: 20120323, end: 20120504
  6. RIBAVIRIN [Suspect]
     Indication: HEPATITIS C
     Dosage: 600 MG, UNK
     Route: 048
     Dates: start: 20120207, end: 20120220
  7. RIBAVIRIN [Suspect]
     Dosage: 200 MG, UNK
     Route: 048
     Dates: start: 20120306, end: 20120628
  8. MUCOSTA [Concomitant]
     Dosage: 300 MG, QD
     Route: 048
     Dates: end: 20120330
  9. FAMOTIDINE [Concomitant]
     Route: 048
  10. MARZULENE-S [Concomitant]
     Dosage: 2.01 G, QD
     Route: 048
     Dates: end: 20120330
  11. VX-950 [Suspect]
     Indication: HEPATITIS C
     Dosage: 2250 MG, QD
     Route: 048
     Dates: start: 20120207, end: 20120322
  12. PEGINTERFERON ALFA-2B [Suspect]
     Dosage: 50 A?G, UNK
     Route: 058
     Dates: start: 20120228, end: 20120727

REACTIONS (2)
  - HAEMOGLOBIN DECREASED [None]
  - WHITE BLOOD CELL COUNT DECREASED [None]
